FAERS Safety Report 6511017-5 (Version None)
Quarter: 2009Q4

REPORT INFORMATION
  Report Type: 
  Country: None (occurrence: None)
  Receive Date: 20091222
  Receipt Date: 20090216
  Transmission Date: 20100525
  Serious: No
  Sender: FDA-Public Use
  Company Number: US-ASTRAZENECA-2009UW04417

PATIENT
  Age: 63 Year
  Sex: Female
  Weight: 59 kg

DRUGS (3)
  1. CRESTOR [Suspect]
     Dosage: 40 MG
     Route: 048
  2. ZOLOFT [Concomitant]
  3. HORMONE CREAM [Concomitant]

REACTIONS (1)
  - BREAST TENDERNESS [None]
